FAERS Safety Report 4361877-1 (Version None)
Quarter: 2004Q2

REPORT INFORMATION
  Report Type: 
  Country: None (occurrence: None)
  Receive Date: 20040521
  Receipt Date: 20040329
  Transmission Date: 20050107
  Serious: No
  Sender: FDA-Public Use
  Company Number: US-GLAXOSMITHKLINE-A0504874A

PATIENT
  Age: 46 Year
  Sex: Female

DRUGS (2)
  1. WELLBUTRIN XL [Suspect]
     Indication: DEPRESSION
     Route: 048
     Dates: start: 20040318, end: 20040320
  2. ANTIBIOTIC [Concomitant]

REACTIONS (8)
  - ABNORMAL BEHAVIOUR [None]
  - HALLUCINATION [None]
  - HYPERTENSION [None]
  - INSOMNIA [None]
  - NIGHT SWEATS [None]
  - PARANOIA [None]
  - THINKING ABNORMAL [None]
  - TREMOR [None]
